APPROVED DRUG PRODUCT: SUNOSI
Active Ingredient: SOLRIAMFETOL HYDROCHLORIDE
Strength: EQ 150MG BASE
Dosage Form/Route: TABLET;ORAL
Application: N211230 | Product #002
Applicant: AXSOME MALTA LTD
Approved: Jun 17, 2019 | RLD: Yes | RS: Yes | Type: RX

PATENTS:
Patent 9604917 | Expires: Jun 7, 2026
Patent 8440715 | Expires: Jun 11, 2031
Patent 10351517 | Expires: Jun 7, 2026
Patent 10512609 | Expires: Sep 5, 2037
Patent 12209059 | Expires: Jun 7, 2026
Patent 11560354 | Expires: Mar 6, 2039
Patent 11160779 | Expires: Mar 19, 2040
Patent 12064411 | Expires: Dec 30, 2042
Patent 12390419 | Expires: Sep 5, 2037
Patent 12090126 | Expires: Dec 30, 2042
Patent 11753368 | Expires: Jun 7, 2026
Patent 12384743 | Expires: Nov 1, 2038
Patent 11998639 | Expires: Sep 5, 2037
Patent 11793776 | Expires: Dec 30, 2042
Patent 11969404 | Expires: Mar 19, 2040
Patent 12194016 | Expires: Mar 19, 2040
Patent 11771667 | Expires: Dec 30, 2042
Patent 11771666 | Expires: Dec 30, 2042
Patent 11779554 | Expires: Dec 30, 2042
Patent 12036194 | Expires: Dec 30, 2042
Patent 8877806 | Expires: Jun 7, 2026
Patent 10912754 | Expires: Jun 1, 2038
Patent 10959976 | Expires: Jun 1, 2038
Patent 11648232 | Expires: Jun 1, 2038
Patent 11865098 | Expires: Jun 1, 2038
Patent 11839599 | Expires: Mar 19, 2040
Patent 11839598 | Expires: Mar 19, 2040
Patent 11850226 | Expires: Mar 19, 2040
Patent 11850227 | Expires: Mar 19, 2040
Patent 11850228 | Expires: Mar 19, 2040
Patent 11857528 | Expires: Mar 19, 2040
Patent 11872203 | Expires: Dec 30, 2042
Patent 11872204 | Expires: Dec 30, 2042
Patent 11986455 | Expires: Mar 19, 2040
Patent 11986454 | Expires: Mar 19, 2040
Patent 12005036 | Expires: Dec 30, 2042
Patent 12102609 | Expires: Dec 30, 2042
Patent 11439597 | Expires: Sep 5, 2037
Patent 10195151 | Expires: Sep 5, 2037

EXCLUSIVITY:
Code: ODE-254 | Date: Jun 17, 2026